FAERS Safety Report 5078827-5 (Version None)
Quarter: 2006Q3

REPORT INFORMATION
  Report Type: 
  Country: None (occurrence: None)
  Receive Date: 20060814
  Receipt Date: 20030410
  Transmission Date: 20061208
  Serious: Yes (Hospitalization)
  Sender: FDA-Public Use
  Company Number: FR-ABBOTT-03P-056-0216193-00

PATIENT
  Age: 77 Year
  Sex: Male

DRUGS (9)
  1. ZECLAR TABLETS [Suspect]
     Indication: BRONCHITIS
     Route: 048
     Dates: start: 20030121, end: 20030129
  2. AMOXICILLIN + CLAVULANATE POTASSIUM [Suspect]
     Indication: BRONCHITIS
     Route: 048
     Dates: start: 20030203, end: 20030205
  3. AMOXICILLIN + CLAVULANATE POTASSIUM [Suspect]
     Route: 048
     Dates: start: 20030125, end: 20030202
  4. MOLSIDOMINE [Concomitant]
     Indication: DRUG USE FOR UNKNOWN INDICATION
  5. CANDESARTAN [Concomitant]
     Indication: DRUG USE FOR UNKNOWN INDICATION
  6. PREDNISONE [Concomitant]
     Indication: DRUG USE FOR UNKNOWN INDICATION
  7. POTASSIUM CHLORATE [Concomitant]
     Indication: DRUG USE FOR UNKNOWN INDICATION
  8. OMEPRAZOLE [Concomitant]
     Indication: DRUG USE FOR UNKNOWN INDICATION
  9. CALCIUM PHOSPHATE [Concomitant]
     Indication: DRUG USE FOR UNKNOWN INDICATION

REACTIONS (6)
  - APHTHOUS STOMATITIS [None]
  - CHOLESTASIS [None]
  - CYTOLYTIC HEPATITIS [None]
  - LIVER DISORDER [None]
  - PYREXIA [None]
  - TOXIC SKIN ERUPTION [None]
